FAERS Safety Report 8092118-X (Version None)
Quarter: 2012Q1

REPORT INFORMATION
  Report Type: 
  Country: None (occurrence: None)
  Receive Date: 20120129
  Receipt Date: 20111206
  Transmission Date: 20120608
  Serious: No
  Sender: FDA-Public Use
  Company Number: US-ABBOTT-11P-163-0871874-00

PATIENT
  Sex: Male
  Weight: 82.628 kg

DRUGS (1)
  1. HUMIRA [Suspect]
     Indication: PSORIASIS
     Dates: start: 20091101, end: 20110901

REACTIONS (2)
  - FIBROMYALGIA [None]
  - CARPAL TUNNEL SYNDROME [None]
